FAERS Safety Report 9400054 (Version 1)
Quarter: 2013Q3

REPORT INFORMATION
  Report Type: Spontaneous
  Country: US (occurrence: US)
  Receive Date: 20130715
  Receipt Date: 20130715
  Transmission Date: 20140515
  Serious: No
  Sender: FDA-Public Use
  Company Number: US-TEVA-415784USA

PATIENT
  Age: 48 Year
  Sex: Female

DRUGS (1)
  1. SYNRIBO [Suspect]
     Indication: CHRONIC MYELOID LEUKAEMIA
     Dates: start: 20130624

REACTIONS (1)
  - Injection site erythema [Unknown]
